FAERS Safety Report 7626779-3 (Version None)
Quarter: 2011Q3

REPORT INFORMATION
  Report Type: 
  Country: None (occurrence: None)
  Receive Date: 20110721
  Receipt Date: 20110714
  Transmission Date: 20111222
  Serious: Yes (Hospitalization)
  Sender: FDA-Public Use
  Company Number: US-SANOFI-AVENTIS-2011SA045236

PATIENT
  Age: 69 Year
  Sex: Male

DRUGS (2)
  1. ALL OTHER THERAPEUTIC PRODUCTS [Concomitant]
  2. LANTUS [Suspect]
     Dosage: 32 UNITS IN AM AND 25 UNITS AT NIGHT
     Route: 058

REACTIONS (1)
  - PERICARDIAL EFFUSION [None]
